FAERS Safety Report 7032545-2 (Version None)
Quarter: 2010Q4

REPORT INFORMATION
  Report Type: 
  Country: None (occurrence: None)
  Receive Date: 20101004
  Receipt Date: 20100924
  Transmission Date: 20110411
  Serious: Yes (Death, Life-Threatening, Hospitalization)
  Sender: FDA-Public Use
  Company Number: WAES 1008USA01772

PATIENT
  Age: 73 Year
  Sex: Male

DRUGS (14)
  1. ZOCOR [Suspect]
     Indication: ACUTE CORONARY SYNDROME
     Dosage: 40 MG/DAILY, PO
     Route: 048
     Dates: start: 20080523, end: 20100718
  2. PLACEBO (UNSPECIFIED) [Suspect]
     Indication: ACUTE CORONARY SYNDROME
     Dosage: PO
     Route: 048
     Dates: start: 20080523, end: 20100718
  3. TAB PLACEBO (UNSPECIFIED) UNK [Suspect]
     Indication: ACUTE CORONARY SYNDROME
     Dosage: PO
     Route: 048
     Dates: start: 20080523, end: 20100718
  4. ALBYL-E [Concomitant]
  5. ASACOL [Concomitant]
  6. COZAAR [Concomitant]
  7. GLUCOPHAGE [Concomitant]
  8. INSULATARD (INSULIN HUMAN, ISOPHANE) [Concomitant]
  9. NOVOMIX [Concomitant]
  10. SOMAC [Concomitant]
  11. ZANIDIP [Concomitant]
  12. CARVEDILOL [Concomitant]
  13. FUROSEMIDE [Concomitant]
  14. WARFARIN [Concomitant]

REACTIONS (7)
  - ASTHENIA [None]
  - HAEMOGLOBIN DECREASED [None]
  - HEPATIC NEOPLASM MALIGNANT [None]
  - INTERNATIONAL NORMALISED RATIO INCREASED [None]
  - METASTASES TO LIVER [None]
  - PANCREATIC NEOPLASM [None]
  - RENAL FAILURE [None]
